FAERS Safety Report 5589351-5 (Version None)
Quarter: 2008Q1

REPORT INFORMATION
  Report Type: 
  Country: None (occurrence: None)
  Receive Date: 20080114
  Receipt Date: 20080107
  Transmission Date: 20080703
  Serious: Yes (Other)
  Sender: FDA-Public Use
  Company Number: US-JNJFOC-20071005753

PATIENT
  Sex: Female
  Weight: 62.6 kg

DRUGS (2)
  1. DURAGESIC-100 [Suspect]
     Indication: PAIN
     Route: 062
  2. PERCOCET [Concomitant]
     Indication: PAIN
     Route: 048

REACTIONS (5)
  - DEPRESSION [None]
  - DRUG ADMINISTERED AT INAPPROPRIATE SITE [None]
  - HYPOTHYROIDISM [None]
  - INCORRECT DRUG ADMINISTRATION DURATION [None]
  - PHARMACEUTICAL PRODUCT COMPLAINT [None]
